FAERS Safety Report 7380699-0 (Version None)
Quarter: 2011Q1

REPORT INFORMATION
  Report Type: 
  Country: None (occurrence: None)
  Receive Date: 20110329
  Receipt Date: 20110322
  Transmission Date: 20110831
  Serious: No
  Sender: FDA-Public Use
  Company Number: US-PFIZER INC-2011041083

PATIENT
  Sex: Female
  Weight: 73 kg

DRUGS (7)
  1. LISINOPRIL [Concomitant]
     Indication: HYPERTENSION
     Dosage: UNK
  2. MOMETASONE [Suspect]
     Dosage: 800 UNK, 3X/DAY
  3. CELEBREX [Suspect]
     Indication: ARTHRALGIA
     Dosage: 200 MG, DAILY
     Route: 048
     Dates: start: 20110223
  4. SOMA [Concomitant]
     Dosage: UNK
  5. PROMETHAZINE [Concomitant]
     Dosage: UNK
  6. ESTRADIOL [Concomitant]
     Dosage: UNK
  7. IBUPROFEN [Concomitant]
     Dosage: 800 MG, UNK

REACTIONS (1)
  - ABDOMINAL DISCOMFORT [None]
